FAERS Safety Report 20368524 (Version 8)
Quarter: 2024Q4

REPORT INFORMATION
  Report Type: Report from Study
  Country: US (occurrence: US)
  Receive Date: 20220124
  Receipt Date: 20241017
  Transmission Date: 20250115
  Serious: Yes (Hospitalization, Other)
  Sender: NOVARTIS
  Company Number: US-NOVARTISPH-NVSC2022US011630

PATIENT
  Age: 59 Year
  Sex: Male

DRUGS (2)
  1. ENTRESTO [Suspect]
     Active Substance: SACUBITRIL\VALSARTAN
     Indication: Cardiac failure
     Dosage: 1 DOSAGE FORM OF 97/103 MG, BID
     Route: 048
     Dates: start: 2019, end: 20220323
  2. ENTRESTO [Suspect]
     Active Substance: SACUBITRIL\VALSARTAN
     Dosage: UNK (DOSE REDUCED)
     Route: 048
     Dates: start: 20220326

REACTIONS (6)
  - Postoperative wound infection [Recovering/Resolving]
  - Wound infection staphylococcal [Recovering/Resolving]
  - Blood creatinine increased [Recovered/Resolved]
  - Poor peripheral circulation [Recovering/Resolving]
  - Glycosylated haemoglobin increased [Recovering/Resolving]
  - Lymphocyte count increased [Unknown]

NARRATIVE: CASE EVENT DATE: 20220301
